FAERS Safety Report 15000144 (Version 2)
Quarter: 2018Q2

REPORT INFORMATION
  Report Type: Spontaneous
  Country: US (occurrence: US)
  Receive Date: 20180612
  Receipt Date: 20180614
  Transmission Date: 20180711
  Serious: No
  Sender: FDA-Public Use
  Company Number: US-PFIZER INC-2018237120

PATIENT
  Age: 68 Year
  Sex: Female
  Weight: 60.78 kg

DRUGS (3)
  1. LETROZOLE. [Suspect]
     Active Substance: LETROZOLE
     Indication: BREAST CANCER STAGE IV
     Dosage: UNK
  2. SYNTHROID [Suspect]
     Active Substance: LEVOTHYROXINE SODIUM
     Indication: THYROID DISORDER
     Dosage: 88, UNKNOWN UNIT, 1X/DAY (IN THE MORNING)
     Route: 048
  3. IBRANCE [Suspect]
     Active Substance: PALBOCICLIB
     Indication: BREAST CANCER STAGE IV
     Dosage: 125 MG, CYCLIC (ONCE DAILY BY MOUTH FOR 21 DAYS AND 7 DAYS OFF)
     Route: 048

REACTIONS (2)
  - Blister [Not Recovered/Not Resolved]
  - Pigmentation disorder [Unknown]
